FAERS Safety Report 23633759 (Version 2)
Quarter: 2024Q4

REPORT INFORMATION
  Report Type: Spontaneous
  Country: BE (occurrence: BE)
  Receive Date: 20240314
  Receipt Date: 20241015
  Transmission Date: 20250115
  Serious: Yes (Hospitalization, Other)
  Sender: SANDOZ
  Company Number: None

PATIENT
  Age: 67 Year
  Sex: Male
  Weight: 100 kg

DRUGS (15)
  1. SODIUM BICARBONATE [Suspect]
     Active Substance: SODIUM BICARBONATE
     Indication: Acidosis
     Dosage: 10 MG, QD
     Route: 065
     Dates: start: 20150602
  2. CELLCEPT [Suspect]
     Active Substance: MYCOPHENOLATE MOFETIL
     Indication: Renal transplant
     Dosage: 500 MG, BID
     Route: 048
     Dates: start: 20150520, end: 20151117
  3. ENALAPRIL [Suspect]
     Active Substance: ENALAPRIL
     Indication: Hypertension
     Dosage: 05 MG, QD
     Route: 065
     Dates: start: 20150818, end: 20160112
  4. EZETIMIBE\SIMVASTATIN [Suspect]
     Active Substance: EZETIMIBE\SIMVASTATIN
     Indication: Hypercholesterolaemia
     Dosage: 10 MG, QD
     Route: 016
     Dates: start: 20150602, end: 20160204
  5. MEDROL [Suspect]
     Active Substance: METHYLPREDNISOLONE
     Indication: Renal transplant
     Dosage: 8 MG, QD
     Route: 016
     Dates: start: 20150519
  6. METHYLPREDNISOLONE [Suspect]
     Active Substance: METHYLPREDNISOLONE
     Indication: Renal transplant
     Dosage: 4 MG, QD
     Route: 065
     Dates: start: 20150519
  7. OMEPRAZOLE [Suspect]
     Active Substance: OMEPRAZOLE
     Indication: Prophylaxis
     Dosage: 20 MG, QD
     Route: 016
     Dates: start: 20150530, end: 20160112
  8. TACROLIMUS [Suspect]
     Active Substance: TACROLIMUS
     Indication: Product used for unknown indication
     Dosage: 3.5 MG, BID
     Route: 065
     Dates: start: 20150520, end: 20151117
  9. SOLU-MEDROL [Suspect]
     Active Substance: METHYLPREDNISOLONE SODIUM SUCCINATE
     Indication: Renal transplant
     Dosage: UNK
     Route: 065
  10. TACROLIMUS [Suspect]
     Active Substance: TACROLIMUS
     Indication: Renal transplant
     Dosage: 3 MG, BID
     Route: 065
     Dates: start: 20151231, end: 20160221
  11. CEFUROXIME [Suspect]
     Active Substance: CEFUROXIME
     Indication: Infection
     Dosage: UNK
     Route: 065
     Dates: start: 20160119, end: 20160120
  12. LEVOTHYROXINE [Concomitant]
     Active Substance: LEVOTHYROXINE
     Indication: Hypothyroidism
     Dosage: 100 UG, QD
     Route: 016
     Dates: start: 20090731
  13. NEORAL [Concomitant]
     Active Substance: CYCLOSPORINE
     Indication: Renal transplant
     Dosage: 100 MG, BID
     Route: 065
     Dates: start: 20160227
  14. NOVOLIN L [Concomitant]
     Active Substance: INSULIN HUMAN
     Indication: Diabetes mellitus
     Dosage: 30 U, UNK
     Route: 065
     Dates: start: 20060101
  15. INSULIN ASPART [Concomitant]
     Active Substance: INSULIN ASPART
     Indication: Diabetes mellitus
     Dosage: 36 U, UNK
     Route: 065
     Dates: start: 20060101

REACTIONS (7)
  - Bronchopneumopathy [Recovered/Resolved]
  - Lymphangitis [Not Recovered/Not Resolved]
  - Osteitis [Recovered/Resolved]
  - Osteitis [Recovered/Resolved]
  - Necrosis [Recovered/Resolved]
  - Neutropenia [Recovered/Resolved]
  - Neutropenia [Not Recovered/Not Resolved]

NARRATIVE: CASE EVENT DATE: 20150921
